FAERS Safety Report 19012086 (Version 1)
Quarter: 2021Q1

REPORT INFORMATION
  Report Type: Spontaneous
  Country: MX (occurrence: MX)
  Receive Date: 20210316
  Receipt Date: 20210316
  Transmission Date: 20210420
  Serious: Yes (Other)
  Sender: FDA-Public Use
  Company Number: MX-STRIDES ARCOLAB LIMITED-2021SP003162

PATIENT
  Age: 30 Year
  Sex: Female

DRUGS (1)
  1. HYDROCORTISONE. [Suspect]
     Active Substance: HYDROCORTISONE
     Indication: DERMATITIS ATOPIC
     Dosage: UNK, CREAM
     Route: 061

REACTIONS (2)
  - Cataract subcapsular [Recovered/Resolved]
  - Cataract nuclear [Recovered/Resolved]
